FAERS Safety Report 6998306-5 (Version None)
Quarter: 2010Q3

REPORT INFORMATION
  Report Type: 
  Country: None (occurrence: None)
  Receive Date: 20100920
  Receipt Date: 20100316
  Transmission Date: 20110219
  Serious: Yes (Other)
  Sender: FDA-Public Use
  Company Number: US-ASTRAZENECA-2010SE01318

PATIENT
  Age: 24016 Day
  Sex: Female
  Weight: 65.8 kg

DRUGS (3)
  1. SEROQUEL [Suspect]
     Indication: SLEEP DISORDER
     Route: 048
     Dates: start: 20091203, end: 20100104
  2. SEROQUEL [Suspect]
     Indication: HYPOMANIA
     Route: 048
     Dates: start: 20091203, end: 20100104
  3. CELEXA [Concomitant]
     Dates: start: 20090620, end: 20091123

REACTIONS (1)
  - RESTLESS LEGS SYNDROME [None]
